FAERS Safety Report 16476362 (Version 1)
Quarter: 2019Q2

REPORT INFORMATION
  Report Type: Spontaneous
  Country: DE (occurrence: DE)
  Receive Date: 20190626
  Receipt Date: 20190626
  Transmission Date: 20190711
  Serious: Yes (Hospitalization, Other)
  Sender: FDA-Public Use
  Company Number: PHHY2019DE143590

PATIENT
  Age: 24 Year
  Sex: Female
  Weight: 80 kg

DRUGS (10)
  1. METFORMIN HYDROCHLORIDE. [Suspect]
     Active Substance: METFORMIN HYDROCHLORIDE
     Indication: POLYCYSTIC OVARIES
  2. UTROGEST [Concomitant]
     Active Substance: PROGESTERONE
     Indication: POLYCYSTIC OVARIES
     Dosage: 100 MG, QD (0-8 GESTATIONAL WEEK)
     Route: 048
  3. FOLIO FORTE [Concomitant]
     Active Substance: FOLIC ACID\VITAMINS
     Indication: PROPHYLAXIS OF NEURAL TUBE DEFECT
     Dosage: 0.8 MG, QD (0-28.1 GESTATIONAL WEEK )
     Route: 048
  4. CETRIZINE [Suspect]
     Active Substance: CETIRIZINE HYDROCHLORIDE
     Indication: DERMATITIS ALLERGIC
     Dosage: 8 WEEK
     Route: 048
  5. L THYROXIN [Concomitant]
     Active Substance: LEVOTHYROXINE SODIUM
     Indication: HYPOTHYROIDISM
     Dosage: 100 G, (0-40 GESTATIONAL WEEK)
     Route: 048
  6. EMSER [Concomitant]
     Indication: SELF-MEDICATION
     Dosage: 13.1-14 GESTATIONAL WEEK
     Route: 045
     Dates: start: 20101220, end: 20101226
  7. EBENOL [Concomitant]
     Indication: HYPERSENSITIVITY
     Dosage: UNK
     Route: 003
     Dates: start: 20101114, end: 20101117
  8. KADEFUNGIN [Concomitant]
     Active Substance: CLOTRIMAZOLE
     Indication: FUNGAL INFECTION
     Dosage: 2ND TRIMESTER
     Route: 067
  9. APSOMOL [Concomitant]
     Active Substance: ALBUTEROL
     Indication: BRONCHITIS
     Dosage: UNK
     Route: 055
     Dates: start: 20101220, end: 20101225
  10. METFORMIN HYDROCHLORIDE. [Suspect]
     Active Substance: METFORMIN HYDROCHLORIDE
     Indication: GLUCOSE TOLERANCE IMPAIRED
     Dosage: 1000 OT, (0-7 GESTATIONAL WEEK)
     Route: 048
     Dates: start: 201009, end: 201011

REACTIONS (3)
  - Premature rupture of membranes [Unknown]
  - Gestational diabetes [Unknown]
  - Maternal exposure during pregnancy [Unknown]

NARRATIVE: CASE EVENT DATE: 2010
